FAERS Safety Report 17438617 (Version 6)
Quarter: 2020Q1

REPORT INFORMATION
  Report Type: Report from Study
  Country: US (occurrence: US)
  Receive Date: 20200220
  Receipt Date: 20200327
  Transmission Date: 20200409
  Serious: Yes (Other)
  Sender: FDA-Public Use
  Company Number: US-PFIZER INC-2019553360

PATIENT
  Age: 64 Year
  Sex: Female

DRUGS (2)
  1. XELJANZ [Suspect]
     Active Substance: TOFACITINIB CITRATE
     Dosage: UNK
  2. XELJANZ [Suspect]
     Active Substance: TOFACITINIB CITRATE
     Dosage: 5 MG, UNK
     Dates: start: 201911

REACTIONS (13)
  - Neck pain [Recovered/Resolved]
  - Malaise [Unknown]
  - Pain [Unknown]
  - Pain [Unknown]
  - Drug ineffective [Unknown]
  - Musculoskeletal pain [Recovered/Resolved]
  - Skin cancer [Unknown]
  - Nasopharyngitis [Recovering/Resolving]
  - Stress [Unknown]
  - Depression [Unknown]
  - Headache [Recovered/Resolved]
  - Influenza [Unknown]
  - Cough [Unknown]

NARRATIVE: CASE EVENT DATE: 202003
